FAERS Safety Report 7489186-2 (Version None)
Quarter: 2011Q2

REPORT INFORMATION
  Report Type: 
  Country: None (occurrence: None)
  Receive Date: 20110518
  Receipt Date: 20110512
  Transmission Date: 20111010
  Serious: Yes (Hospitalization)
  Sender: FDA-Public Use
  Company Number: FR-PFIZER INC-2011062522

PATIENT
  Age: 14 Year
  Sex: Male

DRUGS (1)
  1. ADVIL LIQUI-GELS [Suspect]
     Indication: BACK PAIN
     Dosage: 1 OR 2 TABLETS PER DAY
     Route: 048
     Dates: start: 20110101, end: 20110201

REACTIONS (2)
  - HEPATITIS [None]
  - BILE DUCT OBSTRUCTION [None]
